FAERS Safety Report 7153621-X (Version None)
Quarter: 2010Q4

REPORT INFORMATION
  Report Type: 
  Country: None (occurrence: None)
  Receive Date: 20101213
  Receipt Date: 20101206
  Transmission Date: 20110411
  Serious: Yes (Death)
  Sender: FDA-Public Use
  Company Number: JP-B.I. PHARMACEUTICALS,INC./RIDGEFIELD-2010-DE-06771GD

PATIENT

DRUGS (1)
  1. TELMISARTAN [Suspect]
     Indication: HYPERTENSION
     Dosage: 40 MG

REACTIONS (1)
  - CEREBROVASCULAR ACCIDENT [None]
